FAERS Safety Report 5450959-9 (Version None)
Quarter: 2007Q3

REPORT INFORMATION
  Report Type: 
  Country: None (occurrence: None)
  Receive Date: 20070911
  Receipt Date: 20070904
  Transmission Date: 20080115
  Serious: Yes (Other)
  Sender: FDA-Public Use
  Company Number: 200709AGG00715

PATIENT
  Age: 52 Year
  Sex: Male

DRUGS (3)
  1. AGGRASTAT [Suspect]
     Indication: ANGINA UNSTABLE
     Dosage: INTRAVENOUS
     Route: 042
  2. ASPIRIN [Concomitant]
  3. HEPARIN [Concomitant]

REACTIONS (2)
  - MYOCARDIAL INFARCTION [None]
  - POST PROCEDURAL COMPLICATION [None]
